FAERS Safety Report 25602091 (Version 2)
Quarter: 2025Q3

REPORT INFORMATION
  Report Type: Spontaneous
  Country: US (occurrence: US)
  Receive Date: 20250724
  Receipt Date: 20250729
  Transmission Date: 20251021
  Serious: No
  Sender: ASTELLAS
  Company Number: US-ASTELLAS-2025-AER-033177

PATIENT
  Age: 74 Year
  Sex: Female

DRUGS (4)
  1. VEOZAH [Suspect]
     Active Substance: FEZOLINETANT
     Indication: Hot flush
     Route: 065
     Dates: start: 20250123
  2. VEOZAH [Suspect]
     Active Substance: FEZOLINETANT
     Route: 050
     Dates: start: 20250220
  3. VEOZAH [Suspect]
     Active Substance: FEZOLINETANT
     Route: 050
     Dates: start: 20250417
  4. VEOZAH [Suspect]
     Active Substance: FEZOLINETANT
     Route: 050
     Dates: start: 20250521, end: 20250621

REACTIONS (1)
  - Drug ineffective [Unknown]
